FAERS Safety Report 12633983 (Version 3)
Quarter: 2016Q4

REPORT INFORMATION
  Report Type: Spontaneous
  Country: US (occurrence: US)
  Receive Date: 20160809
  Receipt Date: 20161214
  Transmission Date: 20170207
  Serious: Yes (Death)
  Sender: FDA-Public Use
  Company Number: US-US WORLDMEDS, LLC-USW201607-000534

PATIENT
  Sex: Male

DRUGS (5)
  1. STALEVO [Concomitant]
     Active Substance: CARBIDOPA\ENTACAPONE\LEVODOPA
  2. NUEPRO [Concomitant]
  3. APOKYN [Suspect]
     Active Substance: APOMORPHINE HYDROCHLORIDE
     Indication: PARKINSON^S DISEASE
     Route: 058
     Dates: start: 20130401
  4. AZILECT [Concomitant]
     Active Substance: RASAGILINE MESYLATE
  5. SINEMET [Concomitant]
     Active Substance: CARBIDOPA\LEVODOPA

REACTIONS (3)
  - Cardiac failure congestive [Fatal]
  - Disease progression [Fatal]
  - Parkinson^s disease [Fatal]
